FAERS Safety Report 16029365 (Version 1)
Quarter: 2019Q1

REPORT INFORMATION
  Report Type: Spontaneous
  Country: US (occurrence: US)
  Receive Date: 20190304
  Receipt Date: 20190304
  Transmission Date: 20190418
  Serious: No
  Sender: FDA-Public Use
  Company Number: US-IMPAX LABORATORIES, LLC-2018-IPXL-01387

PATIENT
  Age: 59 Year
  Sex: Female

DRUGS (3)
  1. RYTARY [Suspect]
     Active Substance: CARBIDOPA\LEVODOPA
     Dosage: 23.75/95 MG, 2 CAPSULES 3 TIMES A DAY
     Route: 048
  2. RYTARY [Suspect]
     Active Substance: CARBIDOPA\LEVODOPA
     Indication: PARKINSON^S DISEASE
     Dosage: 23.75/95 MG, 1 CAPSULE 3 TIMES DAILY
     Route: 048
  3. RYTARY [Suspect]
     Active Substance: CARBIDOPA\LEVODOPA
     Dosage: 23.75/95 MG , 3 CAPSULES, THREE TIMES DAILY
     Route: 048

REACTIONS (3)
  - Back disorder [Unknown]
  - Nausea [Recovered/Resolved]
  - Intentional underdose [Unknown]
